FAERS Safety Report 9696353 (Version 1)
Quarter: 2013Q4

REPORT INFORMATION
  Report Type: Spontaneous
  Country: FR (occurrence: FR)
  Receive Date: 20131119
  Receipt Date: 20131119
  Transmission Date: 20140711
  Serious: Yes (Other)
  Sender: FDA-Public Use
  Company Number: FR-PFIZER INC-2013324920

PATIENT
  Age: 49 Year
  Sex: Male
  Weight: 75.6 kg

DRUGS (2)
  1. CRIZOTINIB [Suspect]
     Indication: NON-SMALL CELL LUNG CANCER
     Dosage: 250 MG, 2X/DAY
     Route: 048
  2. CEFTRIAXONE [Concomitant]
     Indication: ACTINOMYCOTIC PULMONARY INFECTION
     Dosage: UNK

REACTIONS (1)
  - Renal failure acute [Unknown]
